FAERS Safety Report 7558887-X (Version None)
Quarter: 2011Q2

REPORT INFORMATION
  Report Type: 
  Country: None (occurrence: None)
  Receive Date: 20110621
  Receipt Date: 20110606
  Transmission Date: 20111010
  Serious: Yes (Other)
  Sender: FDA-Public Use
  Company Number: PL-CELGENEUS-129-20785-11061260

PATIENT

DRUGS (6)
  1. DEXAMETHASONE [Concomitant]
     Dosage: 10 MILLIGRAM
     Route: 065
  2. CYCLOPHOSPHAMIDE [Concomitant]
     Indication: MULTIPLE MYELOMA
     Dosage: 500 MILLIGRAM/SQ. METER
     Route: 051
  3. THALIDOMIDE [Suspect]
     Indication: MULTIPLE MYELOMA
     Dosage: 100 MILLIGRAM
     Route: 048
  4. DEXAMETHASONE [Concomitant]
     Dosage: 75 MILLIGRAM
     Route: 065
  5. ASPIRIN [Concomitant]
     Dosage: 75 MILLIGRAM
     Route: 065
  6. ASPIRIN [Concomitant]
     Dosage: 75 MILLIGRAM
     Route: 065

REACTIONS (2)
  - ARTERIAL THROMBOSIS [None]
  - VENOUS THROMBOSIS [None]
